FAERS Safety Report 10098046 (Version 1)
Quarter: 2014Q2

REPORT INFORMATION
  Report Type: Spontaneous
  Country: US (occurrence: None)
  Receive Date: 20140421
  Receipt Date: 20140421
  Transmission Date: 20141212
  Serious: Yes (Other)
  Sender: FDA-Public Use
  Company Number: 2014AP002620

PATIENT
  Sex: Female

DRUGS (3)
  1. ALENDRONATE SODIUM (ALENDRONATE) TABLET [Suspect]
     Indication: OSTEOPOROSIS
  2. FOSAMAX (ALENDRONATE SODIUM) [Suspect]
     Indication: OSTEOPOROSIS
  3. BISPHOSPHONATES (BISPHOSPHONATES) [Concomitant]

REACTIONS (5)
  - Emotional distress [None]
  - Femur fracture [None]
  - Pain [None]
  - Multiple injuries [None]
  - Mental disorder [None]
